FAERS Safety Report 7060775-2 (Version None)
Quarter: 2010Q4

REPORT INFORMATION
  Report Type: 
  Country: None (occurrence: None)
  Receive Date: 20101025
  Receipt Date: 20100930
  Transmission Date: 20110411
  Serious: No
  Sender: FDA-Public Use
  Company Number: US-BAYER-201034425NA

PATIENT
  Age: 76 Year
  Sex: Male

DRUGS (5)
  1. LEVITRA [Suspect]
     Indication: ERECTILE DYSFUNCTION
     Dosage: FROM LAST PRESCRIPTION FILLED BY THE PHARMACY
     Route: 048
     Dates: start: 20100801, end: 20100801
  2. LEVITRA [Suspect]
     Dosage: FROM LAST PRESCRIPTION FILLED BY THE PHARMACY
     Route: 048
     Dates: start: 20100801, end: 20100801
  3. LANTUS [Concomitant]
  4. UNKNOWN DRUG [Concomitant]
     Indication: GLAUCOMA
  5. UNKNOWN ACE INHIBITOR [Concomitant]

REACTIONS (1)
  - ERECTILE DYSFUNCTION [None]
